FAERS Safety Report 5116178-0 (Version None)
Quarter: 2006Q3

REPORT INFORMATION
  Report Type: 
  Country: None (occurrence: None)
  Receive Date: 20060927
  Receipt Date: 20060720
  Transmission Date: 20061208
  Serious: No
  Sender: FDA-Public Use
  Company Number: US-BRISTOL-MYERS SQUIBB COMPANY-13449525

PATIENT
  Age: 76 Year
  Sex: Male

DRUGS (1)
  1. DEFINITY [Suspect]
     Indication: STRESS ECHOCARDIOGRAM
     Dates: start: 20060720, end: 20060720

REACTIONS (4)
  - CHEST PAIN [None]
  - DISORIENTATION [None]
  - DIZZINESS [None]
  - VOMITING [None]
